FAERS Safety Report 8251362-9 (Version None)
Quarter: 2012Q1

REPORT INFORMATION
  Report Type: 
  Country: None (occurrence: None)
  Receive Date: 20120328
  Receipt Date: 20120320
  Transmission Date: 20120608
  Serious: Yes (Death)
  Sender: FDA-Public Use
  Company Number: ACO_29332_2012

PATIENT
  Age: 65 Year
  Sex: Male

DRUGS (5)
  1. ASPIRIN [Concomitant]
  2. AMPYRA [Suspect]
     Indication: MULTIPLE SCLEROSIS
     Dosage: 10 MG, BID
     Dates: start: 20110303, end: 20120204
  3. CALCIUM + VITAMIN D /01483701/ (CALCIUM, COLECALCIFEROL) [Concomitant]
  4. VITAMIN B-12 [Concomitant]
  5. FOSAMAX [Concomitant]

REACTIONS (1)
  - MYOCARDIAL INFARCTION [None]
